FAERS Safety Report 6492670-1 (Version None)
Quarter: 2009Q4

REPORT INFORMATION
  Report Type: 
  Country: None (occurrence: None)
  Receive Date: 20091214
  Receipt Date: 20091203
  Transmission Date: 20100525
  Serious: Yes (Hospitalization)
  Sender: FDA-Public Use
  Company Number: US-PFIZER INC-2009307648

PATIENT
  Sex: Female
  Weight: 73.923 kg

DRUGS (6)
  1. VERAPAMIL HCL [Suspect]
     Indication: ARRHYTHMIA
  2. VERAPAMIL HCL [Suspect]
     Indication: HYPERTENSION
  3. VASOTEC [Concomitant]
     Indication: HYPERTENSION
     Dosage: UNK
  4. ESTRACE [Concomitant]
     Indication: MENOPAUSE
     Dosage: UNK
  5. PROMETRIUM [Concomitant]
     Indication: MENOPAUSE
  6. LEVOTHYROXINE [Concomitant]
     Indication: THYROID DISORDER

REACTIONS (4)
  - DIZZINESS [None]
  - HEART RATE IRREGULAR [None]
  - PRODUCT SUBSTITUTION ISSUE [None]
  - UNEVALUABLE EVENT [None]
